FAERS Safety Report 21447227 (Version 1)
Quarter: 2022Q4

REPORT INFORMATION
  Report Type: Report from Study
  Country: US (occurrence: US)
  Receive Date: 20221012
  Receipt Date: 20221012
  Transmission Date: 20230113
  Serious: Yes (Other)
  Sender: FDA-Public Use
  Company Number: US-MYLANLABS-2022M1112812

PATIENT
  Age: 1 Year
  Sex: Female

DRUGS (1)
  1. SORAFENIB [Suspect]
     Active Substance: SORAFENIB
     Indication: Acute lymphocytic leukaemia
     Dosage: 200 MILLIGRAM/SQ. METER, BID (200 MG/M2/DAY DIVIDED ORALLY TWICE DAILY)
     Route: 048

REACTIONS (1)
  - Treatment failure [Unknown]
